FAERS Safety Report 25604088 (Version 3)
Quarter: 2025Q3

REPORT INFORMATION
  Report Type: Spontaneous
  Country: US (occurrence: US)
  Receive Date: 20250725
  Receipt Date: 20250904
  Transmission Date: 20251020
  Serious: Yes (Hospitalization, Other)
  Sender: VELOXIS PHARMACEUTICALS
  Company Number: US-VELOXIS PHARMACEUTICALS, INC.-2025-VEL-00388

PATIENT
  Age: 35 Year
  Sex: Female

DRUGS (1)
  1. ENVARSUS XR [Suspect]
     Active Substance: TACROLIMUS
     Indication: Liver transplant
     Route: 065

REACTIONS (5)
  - Immunosuppressant drug level abnormal [Recovered/Resolved]
  - Liver transplant rejection [Not Recovered/Not Resolved]
  - Product dispensing error [Unknown]
  - Wrong technique in product usage process [Unknown]
  - Prophylaxis against transplant rejection [Unknown]

NARRATIVE: CASE EVENT DATE: 20250120
